FAERS Safety Report 10224288 (Version 3)
Quarter: 2014Q3

REPORT INFORMATION
  Report Type: Report from Study
  Country: TR (occurrence: TR)
  Receive Date: 20140609
  Receipt Date: 20140709
  Transmission Date: 20150326
  Serious: Yes (Death, Other)
  Sender: FDA-Public Use
  Company Number: PHHY2014TR069939

PATIENT
  Age: 67 Year
  Sex: Female

DRUGS (5)
  1. SANDOSTATIN LAR DEPOT [Suspect]
     Active Substance: OCTREOTIDE ACETATE
     Indication: NEUROENDOCRINE TUMOUR
     Dosage: 30 MG, EVERY 28 DAYS
     Route: 030
     Dates: start: 20120305, end: 20140331
  2. LODINE [Concomitant]
     Active Substance: ETODOLAC
     Dosage: 300 MG, BID
  3. BUSCOPAN PLUS [Concomitant]
     Active Substance: ACETAMINOPHEN\BUTYLSCOPOLAMINE BROMIDE
     Dosage: UNK UKN, TID
  4. SANDOSTATIN LAR DEPOT [Suspect]
     Active Substance: OCTREOTIDE ACETATE
     Indication: ACROMEGALY
  5. CIPRASID [Concomitant]
     Dosage: 750 MG, BID

REACTIONS (6)
  - Neuroendocrine tumour [Fatal]
  - Metastases to liver [Fatal]
  - Acidosis [Unknown]
  - Haemoglobin decreased [Unknown]
  - Carbon dioxide decreased [Unknown]
  - PO2 decreased [Unknown]

NARRATIVE: CASE EVENT DATE: 20140414
